FAERS Safety Report 25247275 (Version 1)
Quarter: 2025Q2

REPORT INFORMATION
  Report Type: Spontaneous
  Country: CN (occurrence: CN)
  Receive Date: 20250428
  Receipt Date: 20250428
  Transmission Date: 20250717
  Serious: Yes (Other)
  Sender: ELI LILLY AND COMPANY
  Company Number: CN-Merck Healthcare KGaA-2025019977

PATIENT
  Age: 57 Year
  Sex: Male
  Weight: 72 kg

DRUGS (4)
  1. ERBITUX [Suspect]
     Active Substance: CETUXIMAB
     Indication: Rectal cancer metastatic
     Route: 041
     Dates: start: 20250326, end: 20250326
  2. OXALIPLATIN [Suspect]
     Active Substance: OXALIPLATIN
     Indication: Rectal cancer metastatic
     Dosage: 150 MG, DAILY
     Route: 041
     Dates: start: 20250326, end: 20250326
  3. FLUOROURACIL [Suspect]
     Active Substance: FLUOROURACIL
     Indication: Rectal cancer metastatic
     Dosage: 5 G, DAILY
     Route: 042
     Dates: start: 20250326, end: 20250328
  4. LEUCOVORIN CALCIUM [Concomitant]
     Active Substance: LEUCOVORIN CALCIUM
     Indication: Rectal cancer metastatic
     Dosage: 700 MG, DAILY
     Route: 041
     Dates: start: 20250326, end: 20250326

REACTIONS (1)
  - Myelosuppression [Recovering/Resolving]

NARRATIVE: CASE EVENT DATE: 20250330
